FAERS Safety Report 24387112 (Version 1)
Quarter: 2024Q4

REPORT INFORMATION
  Report Type: Spontaneous
  Country: GB (occurrence: GB)
  Receive Date: 20241002
  Receipt Date: 20241002
  Transmission Date: 20250114
  Serious: Yes (Other)
  Sender: MYLAN
  Company Number: None

PATIENT
  Age: 36 Year
  Sex: Male

DRUGS (1)
  1. VIAGRA [Suspect]
     Active Substance: SILDENAFIL CITRATE
     Indication: Product used for unknown indication
     Dosage: 50 MILLIGRAM (50MG)
     Route: 065
     Dates: start: 20240927

REACTIONS (4)
  - Musculoskeletal stiffness [Not Recovered/Not Resolved]
  - Photopsia [Not Recovered/Not Resolved]
  - Cyanopsia [Not Recovered/Not Resolved]
  - Medication error [Unknown]

NARRATIVE: CASE EVENT DATE: 20240927
